FAERS Safety Report 11982951 (Version 1)
Quarter: 2016Q1

REPORT INFORMATION
  Report Type: Spontaneous
  Country: US (occurrence: US)
  Receive Date: 20160201
  Receipt Date: 20160201
  Transmission Date: 20160526
  Serious: No
  Sender: FDA-Public Use
  Company Number: US-WATSON-2015-22038

PATIENT
  Sex: Male
  Weight: 93 kg

DRUGS (6)
  1. PREDNISONE (WATSON LABORATORIES) [Suspect]
     Active Substance: PREDNISONE
     Indication: RASH
  2. BETAMETHASONE DIPROPIONATE (AMALLC) [Suspect]
     Active Substance: BETAMETHASONE DIPROPIONATE
     Indication: RASH
  3. BETAMETHASONE DIPROPIONATE (AMALLC) [Suspect]
     Active Substance: BETAMETHASONE DIPROPIONATE
     Indication: URTICARIA
     Dosage: UNK, UNKNOWN
     Route: 065
     Dates: start: 201508
  4. PREDNISONE (WATSON LABORATORIES) [Suspect]
     Active Substance: PREDNISONE
     Indication: URTICARIA
     Dosage: TAPERED DOSE
     Route: 048
     Dates: start: 201507, end: 201508
  5. BETAMETHASONE DIPROPIONATE (AMALLC) [Suspect]
     Active Substance: BETAMETHASONE DIPROPIONATE
     Indication: PRURITUS
  6. PREDNISONE (WATSON LABORATORIES) [Suspect]
     Active Substance: PREDNISONE
     Indication: PRURITUS

REACTIONS (3)
  - Rash [Not Recovered/Not Resolved]
  - Pruritus [Not Recovered/Not Resolved]
  - Urticaria [Unknown]
